FAERS Safety Report 24228786 (Version 1)
Quarter: 2024Q3

REPORT INFORMATION
  Report Type: Spontaneous
  Country: US (occurrence: None)
  Receive Date: 20240819
  Receipt Date: 20240819
  Transmission Date: 20241016
  Serious: Yes (Other)
  Sender: Public
  Company Number: None

PATIENT
  Age: 67 Year
  Sex: Female
  Weight: 51.3 kg

DRUGS (8)
  1. PERIDEX [Suspect]
     Active Substance: CHLORHEXIDINE GLUCONATE
     Indication: Infection prophylaxis
     Dosage: OTHER QUANTITY : 1 15 ML TWICE A DAY;?FREQUENCY : TWICE A DAY;?OTHER ROUTE : MOUTHWASH;?
     Route: 050
     Dates: start: 20240809, end: 20240811
  2. AZELASTINE [Concomitant]
     Active Substance: AZELASTINE\AZELASTINE HYDROCHLORIDE
  3. VITAMIN D3 [Concomitant]
     Active Substance: CHOLECALCIFEROL
  4. MENAQUINONE 6 [Concomitant]
     Active Substance: MENAQUINONE 6
  5. FISH OIL [Concomitant]
     Active Substance: FISH OIL
  6. MAGNESIUM [Concomitant]
     Active Substance: MAGNESIUM
  7. COLLAGEN [Concomitant]
     Active Substance: COLLAGEN
  8. ZINC [Concomitant]
     Active Substance: ZINC

REACTIONS (6)
  - Oral discomfort [None]
  - Paraesthesia oral [None]
  - Oral pain [None]
  - Gingival swelling [None]
  - Dental discomfort [None]
  - Sleep disorder [None]

NARRATIVE: CASE EVENT DATE: 20240819
